FAERS Safety Report 13482767 (Version 2)
Quarter: 2017Q2

REPORT INFORMATION
  Report Type: Spontaneous
  Country: US (occurrence: US)
  Receive Date: 20170426
  Receipt Date: 20170503
  Transmission Date: 20170830
  Serious: Yes (Other)
  Sender: FDA-Public Use
  Company Number: PHEH2017US011854

PATIENT
  Sex: Female
  Weight: 83.91 kg

DRUGS (3)
  1. CARBAMAZEPINE. [Suspect]
     Active Substance: CARBAMAZEPINE
     Indication: PAIN IN JAW
     Route: 065
  2. LYRICA [Suspect]
     Active Substance: PREGABALIN
     Indication: NERVE INJURY
     Dosage: UNK
     Route: 065
     Dates: start: 201602
  3. CARBAMAZEPINE. [Suspect]
     Active Substance: CARBAMAZEPINE
     Indication: JOINT INJURY

REACTIONS (5)
  - Insomnia [Unknown]
  - Eating disorder [Unknown]
  - Drug use disorder [Unknown]
  - Abdominal pain upper [Unknown]
  - Drug ineffective [Unknown]
